FAERS Safety Report 5011737-8 (Version None)
Quarter: 2006Q2

REPORT INFORMATION
  Report Type: 
  Country: None (occurrence: None)
  Receive Date: 20060523
  Receipt Date: 20060523
  Transmission Date: 20061013
  Serious: No
  Sender: FDA-Public Use
  Company Number: None

PATIENT
  Age: 37 Year
  Sex: Female
  Weight: 53.5244 kg

DRUGS (4)
  1. ERYTHROMYCIN [Suspect]
  2. KEFLEX [Concomitant]
  3. BACTRIM [Concomitant]
  4. ERYTHROMYCIN [Concomitant]

REACTIONS (11)
  - ASTHENIA [None]
  - DRY SKIN [None]
  - HYPERSENSITIVITY [None]
  - IMMUNE SYSTEM DISORDER [None]
  - IMPAIRED HEALING [None]
  - IMPAIRED WORK ABILITY [None]
  - RASH MACULAR [None]
  - SCAR [None]
  - SKIN EXFOLIATION [None]
  - SKIN WRINKLING [None]
  - SUICIDAL IDEATION [None]
